FAERS Safety Report 5824617-2 (Version None)
Quarter: 2008Q3

REPORT INFORMATION
  Report Type: 
  Country: None (occurrence: None)
  Receive Date: 20080728
  Receipt Date: 20080716
  Transmission Date: 20090109
  Serious: Yes (Hospitalization)
  Sender: FDA-Public Use
  Company Number: US-ELI_LILLY_AND_COMPANY-US200806000329

PATIENT
  Sex: Female

DRUGS (13)
  1. FORTEO [Suspect]
     Indication: OSTEOPOROSIS
     Dosage: 20 UG, DAILY (1/D)
     Dates: start: 20070901
  2. FORTEO [Suspect]
     Dosage: UNK, UNK
     Dates: start: 20080518, end: 20080101
  3. FORTEO [Suspect]
     Dates: start: 20080602
  4. LASIX [Concomitant]
  5. COZAAR [Concomitant]
  6. COREG [Concomitant]
  7. AZULFIDINE EN-TABS [Concomitant]
  8. FOLIC ACID [Concomitant]
  9. ALLOPURINOL [Concomitant]
  10. NEXIUM [Concomitant]
  11. REQUIP [Concomitant]
  12. AMBIEN [Concomitant]
  13. DARVOCET [Concomitant]

REACTIONS (6)
  - DEHYDRATION [None]
  - DEVICE FAILURE [None]
  - GASTRIC DISORDER [None]
  - GASTRITIS [None]
  - PHARMACEUTICAL PRODUCT COMPLAINT [None]
  - PNEUMONIA [None]
